FAERS Safety Report 11730085 (Version 1)
Quarter: 2015Q4

REPORT INFORMATION
  Report Type: Spontaneous
  Country: CN (occurrence: CN)
  Receive Date: 20151112
  Receipt Date: 20151112
  Transmission Date: 20160304
  Serious: Yes (Other)
  Sender: FDA-Public Use
  Company Number: CN-009507513-1511CHN003832

PATIENT
  Age: 44 Year
  Sex: Male
  Weight: 50 kg

DRUGS (2)
  1. TIENAM [Suspect]
     Active Substance: CILASTATIN SODIUM\IMIPENEM
     Indication: INFECTION
     Dosage: 0.5 G, QID
     Route: 041
     Dates: start: 20150601, end: 20150605
  2. AZITHROMYCIN [Concomitant]
     Active Substance: AZITHROMYCIN ANHYDROUS
     Indication: INFECTION
     Dosage: 0.5 G, QD
     Route: 041
     Dates: start: 20150601, end: 20150604

REACTIONS (3)
  - Loss of consciousness [Recovering/Resolving]
  - Seizure [Recovering/Resolving]
  - Confusional state [Recovering/Resolving]

NARRATIVE: CASE EVENT DATE: 20150601
